FAERS Safety Report 4984020-4 (Version None)
Quarter: 2006Q1

REPORT INFORMATION
  Report Type: 
  Country: None (occurrence: None)
  Receive Date: 20060301
  Receipt Date: 20051205
  Transmission Date: 20060701
  Serious: Yes (Other)
  Sender: FDA-Public Use
  Company Number: S05-USA-03829-01

PATIENT

DRUGS (2)
  1. NAMENDA [Suspect]
     Dosage: 10 MG BID PO
     Route: 048
     Dates: start: 20050101
  2. MULTIPLE MEDICATIONS (NOS) [Concomitant]

REACTIONS (1)
  - RENAL FAILURE [None]
